FAERS Safety Report 4334637-5 (Version None)
Quarter: 2004Q1

REPORT INFORMATION
  Report Type: 
  Country: None (occurrence: None)
  Receive Date: 20040329
  Receipt Date: 20040226
  Transmission Date: 20041129
  Serious: No
  Sender: FDA-Public Use
  Company Number: 03P-163-0245957-00

PATIENT
  Age: 77 Year
  Sex: Female
  Weight: 54.8852 kg

DRUGS (11)
  1. HUMIRA [Suspect]
     Indication: RHEUMATOID ARTHRITIS
     Dosage: 40 MG, 1 IN 2 WK, SUBCUTANEOUS
     Route: 058
     Dates: start: 20031005
  2. ROFECOXIB [Concomitant]
  3. METHOTREXATE SODIUM [Concomitant]
  4. LANSOPRAZOLE [Concomitant]
  5. FOLIC ACID [Concomitant]
  6. ALENDRONATE SODIUM [Concomitant]
  7. TOCOPHEROL CONCENTRATE CAP [Concomitant]
  8. ASCORBIC ACID [Concomitant]
  9. CYANOCOBALAMIN [Concomitant]
  10. CALCIUM [Concomitant]
  11. IRON [Concomitant]

REACTIONS (6)
  - DRY MOUTH [None]
  - DRY SKIN [None]
  - KERATOCONJUNCTIVITIS SICCA [None]
  - PRURITUS [None]
  - TONGUE COATED [None]
  - TONGUE DISCOLOURATION [None]
